FAERS Safety Report 7367032-5 (Version None)
Quarter: 2011Q1

REPORT INFORMATION
  Report Type: 
  Country: None (occurrence: None)
  Receive Date: 20110317
  Receipt Date: 20110317
  Transmission Date: 20110831
  Serious: Yes (Other)
  Sender: FDA-Public Use
  Company Number: None

PATIENT
  Age: 86 Year
  Sex: Female
  Weight: 45.3597 kg

DRUGS (1)
  1. PRADAXA [Suspect]
     Indication: ATRIAL FIBRILLATION
     Dosage: 150MG TWICE A DAY PO
     Route: 048
     Dates: start: 20110308, end: 20110308

REACTIONS (6)
  - BURNING SENSATION [None]
  - FALL [None]
  - RIB FRACTURE [None]
  - CHEST PAIN [None]
  - CEREBROVASCULAR ACCIDENT [None]
  - DYSPEPSIA [None]
